FAERS Safety Report 12522916 (Version 1)
Quarter: 2016Q3

REPORT INFORMATION
  Report Type: Report from Study
  Country: NL (occurrence: NL)
  Receive Date: 20160701
  Receipt Date: 20160701
  Transmission Date: 20161109
  Serious: Yes (Other)
  Sender: FDA-Public Use
  Company Number: NL-SAOL THERAPEUTICS-2016SAO00025

PATIENT

DRUGS (1)
  1. BACLOFEN. [Suspect]
     Active Substance: BACLOFEN
     Route: 037

REACTIONS (3)
  - Implant site extravasation [Unknown]
  - Medical device site oedema [Unknown]
  - Surgery [Unknown]

NARRATIVE: CASE EVENT DATE: 20160219
